FAERS Safety Report 18348332 (Version 1)
Quarter: 2020Q4

REPORT INFORMATION
  Report Type: Other
  Country: US (occurrence: US)
  Receive Date: 20201006
  Receipt Date: 20201006
  Transmission Date: 20210114
  Serious: Yes (Hospitalization)
  Sender: FDA-Public Use
  Company Number: US-ROCHE-2689196

PATIENT
  Age: 50 Year
  Sex: Male

DRUGS (3)
  1. ACTILYSE [Suspect]
     Active Substance: ALTEPLASE
     Indication: PULMONARY EMBOLISM
     Dosage: INFUSED OVER 2 HOURS
     Route: 065
  2. ACTILYSE [Suspect]
     Active Substance: ALTEPLASE
     Indication: HYPOXIA
  3. ACTILYSE [Suspect]
     Active Substance: ALTEPLASE
     Indication: SHOCK

REACTIONS (1)
  - COVID-19 [Unknown]
